FAERS Safety Report 4519589-7 (Version None)
Quarter: 2005Q1

REPORT INFORMATION
  Report Type: 
  Country: None (occurrence: None)
  Receive Date: 20041101
  Receipt Date: 20030918
  Transmission Date: 20050727
  Serious: Yes (Other)
  Sender: FDA-Public Use
  Company Number: HQWYE819922SEP03

PATIENT
  Age: 52 Year
  Sex: Female
  Weight: 55.39 kg

DRUGS (8)
  1. PREMARIN [Suspect]
     Indication: HOT FLUSH
     Dosage: SEE IMAGE
     Route: 048
     Dates: start: 19960101, end: 20000101
  2. PREMARIN [Suspect]
     Indication: INSOMNIA
     Dosage: SEE IMAGE
     Route: 048
     Dates: start: 19960101, end: 20000101
  3. PREMARIN [Suspect]
     Indication: HOT FLUSH
     Dosage: SEE IMAGE
     Route: 048
     Dates: end: 20030601
  4. PREMARIN [Suspect]
     Indication: INSOMNIA
     Dosage: SEE IMAGE
     Route: 048
     Dates: end: 20030601
  5. PREMARIN [Suspect]
     Indication: HOT FLUSH
     Dosage: SEE IMAGE
     Route: 048
     Dates: start: 20000101
  6. PREMARIN [Suspect]
     Indication: INSOMNIA
     Dosage: SEE IMAGE
     Route: 048
     Dates: start: 20000101
  7. PREMARIN [Suspect]
     Indication: HOT FLUSH
     Dosage: SEE IMAGE
     Route: 048
     Dates: start: 20030601
  8. PREMARIN [Suspect]
     Indication: INSOMNIA
     Dosage: SEE IMAGE
     Route: 048
     Dates: start: 20030601

REACTIONS (5)
  - APATHY [None]
  - ASTHENIA [None]
  - FATIGUE [None]
  - FEELING ABNORMAL [None]
  - MYALGIA [None]
